FAERS Safety Report 6526621-8 (Version None)
Quarter: 2010Q1

REPORT INFORMATION
  Report Type: 
  Country: None (occurrence: None)
  Receive Date: 20100105
  Receipt Date: 20091222
  Transmission Date: 20100710
  Serious: Yes (Hospitalization)
  Sender: FDA-Public Use
  Company Number: ES-AMGEN-US381953

PATIENT
  Age: 62 Year
  Sex: Female

DRUGS (2)
  1. ENBREL [Suspect]
     Indication: PSORIASIS
     Route: 065
     Dates: start: 20070301
  2. URSODEOXYCHOLATE SODIUM [Concomitant]
     Indication: BILIARY CIRRHOSIS PRIMARY
     Route: 065

REACTIONS (3)
  - ABDOMINAL PAIN [None]
  - ASTHENIA [None]
  - JAUNDICE [None]
